FAERS Safety Report 24443939 (Version 1)
Quarter: 2024Q4

REPORT INFORMATION
  Report Type: Spontaneous
  Country: JP (occurrence: JP)
  Receive Date: 20241016
  Receipt Date: 20241016
  Transmission Date: 20250114
  Serious: Yes (Hospitalization)
  Sender: PFIZER
  Company Number: JP-PFIZER INC-202400267114

PATIENT
  Age: 76 Year
  Sex: Male
  Weight: 61.9 kg

DRUGS (12)
  1. ELREXFIO [Suspect]
     Active Substance: ELRANATAMAB-BCMM
     Dosage: 12 MG, 1X/DAY
     Route: 058
     Dates: start: 20240722, end: 20240722
  2. ELREXFIO [Suspect]
     Active Substance: ELRANATAMAB-BCMM
     Dosage: 32 MG, 1X/DAY
     Route: 058
     Dates: start: 20240725, end: 20240725
  3. ELREXFIO [Suspect]
     Active Substance: ELRANATAMAB-BCMM
     Dosage: 76 MG, 1X/DAY
     Route: 058
     Dates: start: 20240729, end: 20240729
  4. ELREXFIO [Suspect]
     Active Substance: ELRANATAMAB-BCMM
     Dosage: 76 MG, 1X/DAY
     Route: 058
     Dates: start: 20240805, end: 20240805
  5. ELREXFIO [Suspect]
     Active Substance: ELRANATAMAB-BCMM
     Dosage: 76 MG, 1X/DAY
     Route: 058
     Dates: start: 20240813, end: 20240813
  6. CANDESARTAN CILEXETIL [Concomitant]
     Active Substance: CANDESARTAN CILEXETIL
     Indication: Hypertension
     Dosage: 3 DF, 1X/DAY IN THE MORNING
  7. AMLODIPINE BESYLATE [Concomitant]
     Active Substance: AMLODIPINE BESYLATE
     Indication: Hypertension
     Dosage: 1 DF, 1X/DAY IN THE MORNING
  8. SULFAMETHOXAZOLE\TRIMETHOPRIM [Concomitant]
     Active Substance: SULFAMETHOXAZOLE\TRIMETHOPRIM
     Indication: Prophylaxis
     Dosage: 1 DF, 1X/DAY IN THE MORNING
  9. METHYLCOBALAMIN [Concomitant]
     Active Substance: METHYLCOBALAMIN
     Indication: Neuropathy peripheral
     Dosage: 3 DF, 3X/DAY IN THE MORNING, AT NOON, AND IN THE EVENING
  10. LAC B N [Concomitant]
     Indication: Diarrhoea
     Dosage: GRANULAR POWDER, 1 PACKET, 3X/DAY IN THE MORNING, AT NOON, AND IN THE EVENING
  11. ESOMEPRAZOLE MAGNESIUM [Concomitant]
     Active Substance: ESOMEPRAZOLE MAGNESIUM
     Indication: Prophylaxis
     Dosage: 1 DF, 1X/DAY AFTER DINNER
  12. PREGABALIN [Concomitant]
     Active Substance: PREGABALIN
     Indication: Neuropathy peripheral
     Dosage: 1 DF, 2X/DAY IN THE MORNING AND EVENING

REACTIONS (1)
  - Herpes zoster [Recovering/Resolving]

NARRATIVE: CASE EVENT DATE: 20240924
